FAERS Safety Report 16779733 (Version 1)
Quarter: 2019Q3

REPORT INFORMATION
  Report Type: Spontaneous
  Country: GB (occurrence: GB)
  Receive Date: 20190906
  Receipt Date: 20190906
  Transmission Date: 20191005
  Serious: Yes (Other)
  Sender: FDA-Public Use
  Company Number: GB-TERSERA THERAPEUTICS LLC-2019TRS001807

PATIENT

DRUGS (1)
  1. ZOLADEX [Suspect]
     Active Substance: GOSERELIN ACETATE
     Indication: PROSTATE CANCER
     Dosage: 10.8MG UNKNOWN
     Route: 058
     Dates: start: 20160619, end: 20190325

REACTIONS (2)
  - Toxicity to various agents [Unknown]
  - Musculoskeletal stiffness [Recovered/Resolved]

NARRATIVE: CASE EVENT DATE: 20160619
